FAERS Safety Report 17675357 (Version 1)
Quarter: 2020Q2

REPORT INFORMATION
  Report Type: Spontaneous
  Country: GB (occurrence: GB)
  Receive Date: 20200416
  Receipt Date: 20200416
  Transmission Date: 20200714
  Serious: Yes (Hospitalization, Other)
  Sender: FDA-Public Use
  Company Number: GB-BAYER-2020-058429

PATIENT
  Sex: Female

DRUGS (1)
  1. MIRENA [Suspect]
     Active Substance: LEVONORGESTREL
     Dosage: 20 ?G PER DAY CONTINUOUSLY
     Route: 015
     Dates: start: 201910, end: 20200312

REACTIONS (11)
  - Liver function test abnormal [Recovering/Resolving]
  - Drug ineffective [None]
  - Amenorrhoea [None]
  - Musculoskeletal pain [Recovering/Resolving]
  - Menstruation irregular [Recovered/Resolved]
  - Hypomenorrhoea [Recovered/Resolved]
  - Dysmenorrhoea [Recovering/Resolving]
  - Device dislocation [Recovered/Resolved]
  - Ectopic pregnancy with contraceptive device [Recovering/Resolving]
  - Hypotension [Recovering/Resolving]
  - Haemoperitoneum [Recovering/Resolving]

NARRATIVE: CASE EVENT DATE: 201910
